FAERS Safety Report 10587290 (Version 2)
Quarter: 2020Q3

REPORT INFORMATION
  Report Type: Other
  Country: CA (occurrence: CA)
  Receive Date: 20141117
  Receipt Date: 20200813
  Transmission Date: 20201102
  Serious: Yes (Hospitalization, Other)
  Sender: FDA-Public Use
  Company Number: CA-ROCHE-1488552

PATIENT
  Age: 58 Year
  Sex: Male
  Weight: 74 kg

DRUGS (15)
  1. RITUXAN [Suspect]
     Active Substance: RITUXIMAB
     Indication: ANTIPHOSPHOLIPID SYNDROME
  2. RANITIDINE. [Concomitant]
     Active Substance: RANITIDINE
  3. RITUXAN [Suspect]
     Active Substance: RITUXIMAB
     Indication: AUTOIMMUNE HAEMOLYTIC ANAEMIA
     Dosage: DATE OF PREVIOS DOSE ADMINISTERED: 23/JUL/2013.
     Route: 042
     Dates: start: 20061212, end: 20110120
  4. RITUXAN [Suspect]
     Active Substance: RITUXIMAB
     Indication: THYMOMA
  5. DIPHENHYDRAMINE HYDROCHLORIDE. [Concomitant]
     Active Substance: DIPHENHYDRAMINE HYDROCHLORIDE
     Indication: PREMEDICATION
     Route: 048
  6. OXYGEN. [Concomitant]
     Active Substance: OXYGEN
     Dosage: 3L PER MINUTE VIA NASAL PRONGS
  7. RITUXAN [Suspect]
     Active Substance: RITUXIMAB
     Indication: MYASTHENIA GRAVIS
  8. ACETAMINOPHEN. [Concomitant]
     Active Substance: ACETAMINOPHEN
     Indication: PREMEDICATION
     Route: 048
  9. PULMICORT TURBUHALER [Concomitant]
     Active Substance: BUDESONIDE
  10. ATROVENT [Concomitant]
     Active Substance: IPRATROPIUM BROMIDE
  11. SPIRIVA [Concomitant]
     Active Substance: TIOTROPIUM BROMIDE MONOHYDRATE
  12. METHYLPREDNISOLONE. [Concomitant]
     Active Substance: METHYLPREDNISOLONE
     Indication: PREMEDICATION
     Route: 042
  13. PREDNISONE. [Concomitant]
     Active Substance: PREDNISONE
  14. CELLCEPT [Suspect]
     Active Substance: MYCOPHENOLATE MOFETIL\MYCOPHENOLATE MOFETIL HYDROCHLORIDE
     Indication: PRODUCT USED FOR UNKNOWN INDICATION
     Route: 065
  15. RITUXAN [Suspect]
     Active Substance: RITUXIMAB
     Indication: IMMUNE THROMBOCYTOPENIA
     Route: 042

REACTIONS (29)
  - Heart rate decreased [Unknown]
  - Hypotension [Recovering/Resolving]
  - Pneumonia [Unknown]
  - Heart rate increased [Not Recovered/Not Resolved]
  - Haematoma [Not Recovered/Not Resolved]
  - Concussion [Unknown]
  - Speech disorder [Recovering/Resolving]
  - Rotator cuff syndrome [Unknown]
  - Upper respiratory tract infection [Not Recovered/Not Resolved]
  - Herpes zoster [Recovered/Resolved]
  - Cardiac pacemaker replacement [Unknown]
  - Off label use [Unknown]
  - Nasopharyngitis [Not Recovered/Not Resolved]
  - Platelet count decreased [Not Recovered/Not Resolved]
  - Disturbance in attention [Unknown]
  - Immunoglobulins decreased [Unknown]
  - Dyspnoea [Recovering/Resolving]
  - White blood cell count decreased [Not Recovered/Not Resolved]
  - Pneumonia [Unknown]
  - Implant site pain [Unknown]
  - Onychomycosis [Unknown]
  - Splenomegaly [Not Recovered/Not Resolved]
  - Vision blurred [Not Recovered/Not Resolved]
  - Syncope [Unknown]
  - Subdural haematoma [Unknown]
  - Fall [Unknown]
  - Bronchitis [Recovered/Resolved]
  - Contusion [Not Recovered/Not Resolved]
  - Intentional product use issue [Unknown]

NARRATIVE: CASE EVENT DATE: 200905
